FAERS Safety Report 6508099-3 (Version None)
Quarter: 2009Q4

REPORT INFORMATION
  Report Type: 
  Country: None (occurrence: None)
  Receive Date: 20091221
  Receipt Date: 20091210
  Transmission Date: 20100525
  Serious: Yes (Other)
  Sender: FDA-Public Use
  Company Number: US-JNJFOC-20091203478

PATIENT
  Sex: Male
  Weight: 88.8 kg

DRUGS (5)
  1. REMICADE [Suspect]
     Route: 042
  2. REMICADE [Suspect]
     Indication: INFLAMMATORY BOWEL DISEASE
     Route: 042
  3. METHOTREXATE [Concomitant]
  4. PRILOSEC [Concomitant]
  5. CYMBALTA [Concomitant]

REACTIONS (2)
  - CONVULSION [None]
  - SYNCOPE [None]
